FAERS Safety Report 18431961 (Version 3)
Quarter: 2021Q1

REPORT INFORMATION
  Report Type: Report from Study
  Country: CA (occurrence: CA)
  Receive Date: 20201027
  Receipt Date: 20210331
  Transmission Date: 20210419
  Serious: Yes (Other)
  Sender: FDA-Public Use
  Company Number: CA-JNJFOC-20201026545

PATIENT
  Age: 31 Year
  Sex: Female
  Weight: 76 kg

DRUGS (4)
  1. REMICADE [Suspect]
     Active Substance: INFLIXIMAB
     Indication: COLITIS ULCERATIVE
     Route: 042
     Dates: start: 201108
  2. REMICADE [Suspect]
     Active Substance: INFLIXIMAB
     Dosage: LAST INFUSION WAS ON 29?MAY?2020
     Route: 042
     Dates: start: 20201015
  3. IMURAN [Suspect]
     Active Substance: AZATHIOPRINE
     Indication: PRODUCT USED FOR UNKNOWN INDICATION
     Route: 065
     Dates: end: 2020
  4. REMICADE [Suspect]
     Active Substance: INFLIXIMAB
     Dosage: : 800 MG X 1 DOSE ON 25/03/2021 AND THEN 600 MG Q 7 WEEKS
     Route: 042

REACTIONS (3)
  - Colitis ulcerative [Not Recovered/Not Resolved]
  - Cytomegalovirus infection [Unknown]
  - Drug level decreased [Unknown]

NARRATIVE: CASE EVENT DATE: 202010
